FAERS Safety Report 20003510 (Version 2)
Quarter: 2022Q1

REPORT INFORMATION
  Report Type: Spontaneous
  Country: US (occurrence: US)
  Receive Date: 20211027
  Receipt Date: 20220225
  Transmission Date: 20220423
  Serious: No
  Sender: FDA-Public Use
  Company Number: US-PFIZER INC-202101375814

PATIENT
  Age: 65 Year
  Sex: Female
  Weight: 63.5 kg

DRUGS (5)
  1. IBRANCE [Suspect]
     Active Substance: PALBOCICLIB
     Indication: Breast cancer metastatic
     Dosage: 125 MG, CYCLIC (125 MG DAILY FOR 3 WEEKS, THEN OFF FOR 1 WEEK)
     Dates: start: 2016
  2. FASLODEX [Concomitant]
     Active Substance: FULVESTRANT
     Indication: Neoplasm malignant
     Dosage: UNK, MONTHLY (ONCE A MONTH)
  3. ZOMETA [Concomitant]
     Active Substance: ZOLEDRONIC ACID
     Indication: Neoplasm malignant
     Dosage: UNK, EVERY 3 MONTHS
  4. LISINOPRIL [Concomitant]
     Active Substance: LISINOPRIL
     Indication: Blood pressure abnormal
     Dosage: 10 MG, 1X/DAY
  5. OMEPRAZOLE [Concomitant]
     Active Substance: OMEPRAZOLE
     Indication: Gastrooesophageal reflux disease
     Dosage: 40 MG, 1X/DAY

REACTIONS (2)
  - Urinary tract infection [Not Recovered/Not Resolved]
  - Disease recurrence [Not Recovered/Not Resolved]
